FAERS Safety Report 13286385 (Version 2)
Quarter: 2017Q2

REPORT INFORMATION
  Report Type: Spontaneous
  Country: US (occurrence: US)
  Receive Date: 20170301
  Receipt Date: 20170418
  Transmission Date: 20170830
  Serious: Yes (Other)
  Sender: FDA-Public Use
  Company Number: GXBR2017US000947

PATIENT
  Age: 83 Year
  Sex: Female
  Weight: 58.96 kg

DRUGS (2)
  1. ENALAPRIL MALEATE TABLETS USP [Suspect]
     Active Substance: ENALAPRIL MALEATE
     Indication: HYPERTENSION
     Dosage: 20 MG, BID
     Route: 065
  2. CLONIDINE TEVA [Suspect]
     Active Substance: CLONIDINE
     Indication: HYPERTENSION
     Dosage: 0.2 MG, UNK
     Route: 062
     Dates: start: 199601

REACTIONS (3)
  - Hypertension [Recovered/Resolved]
  - Fall [Unknown]
  - Ulcer [Unknown]

NARRATIVE: CASE EVENT DATE: 201510
